FAERS Safety Report 6212422-7 (Version None)
Quarter: 2009Q2

REPORT INFORMATION
  Report Type: 
  Country: None (occurrence: None)
  Receive Date: 20090603
  Receipt Date: 20070702
  Transmission Date: 20091009
  Serious: Yes (Other)
  Sender: FDA-Public Use
  Company Number: US-ASTRAZENECA-2006UW25233

PATIENT
  Age: 33 Year
  Sex: Male
  Weight: 104.8 kg

DRUGS (40)
  1. SEROQUEL [Suspect]
     Indication: DEPRESSION
     Route: 048
     Dates: start: 19980101, end: 20010101
  2. SEROQUEL [Suspect]
     Indication: SCHIZOAFFECTIVE DISORDER
     Route: 048
     Dates: start: 19980101, end: 20010101
  3. SEROQUEL [Suspect]
     Indication: POST-TRAUMATIC STRESS DISORDER
     Route: 048
     Dates: start: 19980101, end: 20010101
  4. SEROQUEL [Suspect]
     Route: 048
     Dates: start: 20010416, end: 20010906
  5. SEROQUEL [Suspect]
     Route: 048
     Dates: start: 20010416, end: 20010906
  6. SEROQUEL [Suspect]
     Route: 048
     Dates: start: 20010416, end: 20010906
  7. ZYPREXA [Suspect]
  8. ABILIFY [Concomitant]
  9. CLOZARIL [Concomitant]
  10. GEODON [Concomitant]
  11. HALDOL [Concomitant]
  12. NAVANE [Concomitant]
  13. RISPERDAL [Concomitant]
  14. NIFEDIPINE [Concomitant]
     Route: 048
  15. OXYCONTIN [Concomitant]
     Route: 048
  16. AMBIEN [Concomitant]
     Route: 048
  17. TEMAZEPAM [Concomitant]
     Route: 048
  18. ACETAMINOPHEN AND HYDROCODONE BITARTRATE [Concomitant]
     Dosage: 10-325MG
     Route: 048
  19. GEMFIBROZIL [Concomitant]
     Route: 048
  20. ALLEGRA D 24 HOUR [Concomitant]
     Route: 048
  21. DICLOFEN [Concomitant]
     Route: 048
  22. WELLBUTRIN [Concomitant]
     Route: 048
  23. ZYRTEC-D 12 HOUR [Concomitant]
     Route: 048
  24. KETOROLAC [Concomitant]
     Route: 048
  25. SKELAXIN [Concomitant]
     Route: 048
  26. ZOCOR [Concomitant]
     Route: 048
  27. AVANDIA [Concomitant]
     Route: 048
  28. PROZAC [Concomitant]
     Route: 048
  29. PAPAVERINE [Concomitant]
     Route: 048
  30. ACCUPRIL [Concomitant]
     Route: 048
  31. PROPRANOLOL HYDROCHLORIDE [Concomitant]
     Route: 048
  32. VIOXX [Concomitant]
     Route: 048
  33. CLONAZEPAM [Concomitant]
     Route: 048
  34. PREVACID [Concomitant]
     Route: 048
  35. DEPAKOTE [Concomitant]
     Route: 048
  36. CYCLOBENZAPRINE [Concomitant]
     Route: 048
  37. EFFEXOR [Concomitant]
     Route: 048
  38. CELEXA [Concomitant]
     Route: 048
  39. METHYLPHENIDATE HCL [Concomitant]
     Route: 048
  40. DIAZEPAM [Concomitant]
     Route: 048

REACTIONS (2)
  - DIABETES MELLITUS [None]
  - DIABETIC NEUROPATHY [None]
